FAERS Safety Report 6391268-3 (Version None)
Quarter: 2009Q4

REPORT INFORMATION
  Report Type: 
  Country: None (occurrence: None)
  Receive Date: 20091007
  Receipt Date: 20090923
  Transmission Date: 20100525
  Serious: Yes (Hospitalization)
  Sender: FDA-Public Use
  Company Number: FR-PFIZER INC-2009272672

PATIENT
  Age: 85 Year

DRUGS (13)
  1. ALDACTONE [Suspect]
     Dosage: 25 MG, 1X/DAY
     Route: 048
     Dates: end: 20090309
  2. GABAPENTIN [Suspect]
     Indication: GAIT DISTURBANCE
     Dosage: 300 MG, 3X/DAY
     Route: 048
     Dates: start: 20090201, end: 20090309
  3. CELECTOL [Suspect]
     Dosage: 100 MG, 1X/DAY
     Route: 048
     Dates: end: 20090309
  4. TRIATEC [Suspect]
     Dosage: 5 MG, 2X/DAY
     Route: 048
     Dates: end: 20090309
  5. MONICOR [Suspect]
     Dosage: 40 MG, 2X/DAY
     Route: 048
     Dates: end: 20090309
  6. MODOPAR [Suspect]
     Indication: GAIT DISTURBANCE
     Dosage: 100/25 MG, 3X/DAY
     Route: 048
     Dates: start: 20090201, end: 20090309
  7. FUROSEMIDE [Concomitant]
  8. PLAVIX [Concomitant]
  9. KARDEGIC [Concomitant]
  10. DIFFU K [Concomitant]
  11. SERC [Concomitant]
  12. ALLOPURINOL [Concomitant]
  13. SIMVASTATIN [Concomitant]

REACTIONS (2)
  - BRADYCARDIA [None]
  - HYPOTENSION [None]
